FAERS Safety Report 7146524 (Version 2)
Quarter: 2012Q4

REPORT INFORMATION
  Report Type: 
  Country: US (occurrence: US)
  Receive Date: 20091012
  Receipt Date: 20121106
  Transmission Date: 20130627
  Serious: No
  Sender: FDA-Public Use
  Company Number: US-ASTRAZENECA-2009UW21874

PATIENT
  Age: 53 Year
  Sex: Female

DRUGS (9)
  1. SYMBICORT [Suspect]
     Indication: ASTHMA
     Dosage: 320 MCG, BID
     Route: 055
     Dates: start: 200905
  2. SYMBICORT [Suspect]
     Indication: ASTHMA
     Dosage: 160/4.5 MCG, BID
     Route: 055
  3. PRO-AIR [Concomitant]
  4. TUSSIONEX [Concomitant]
  5. BENZONATATE [Concomitant]
  6. NEXIUM [Concomitant]
  7. SIMVASTATIN [Concomitant]
  8. XOLAIR [Concomitant]
  9. RESCUE INHALER [Concomitant]
     Indication: PROPHYLAXIS

REACTIONS (6)
  - Chest discomfort [Unknown]
  - Diverticulitis [Unknown]
  - Irritable bowel syndrome [Unknown]
  - Abdominal pain upper [Unknown]
  - Throat tightness [Unknown]
  - Dysphonia [Unknown]
